FAERS Safety Report 4443493-6 (Version None)
Quarter: 2004Q3

REPORT INFORMATION
  Report Type: 
  Country: None (occurrence: None)
  Receive Date: 20040901
  Receipt Date: 20040820
  Transmission Date: 20050211
  Serious: Yes (Hospitalization)
  Sender: FDA-Public Use
  Company Number: 208167

PATIENT
  Age: 12 Year
  Sex: Female
  Weight: 30.9 kg

DRUGS (8)
  1. NUTROPIN AQ [Suspect]
     Indication: LUNG DISORDER
     Dosage: 1.545 MG, 6/WEEK, SUBCUTANEOUS
     Route: 058
     Dates: start: 20030702, end: 20040513
  2. MEGACE [Concomitant]
  3. AZITHRIOMYCIN (AZITHROMYCIN) [Concomitant]
  4. NEBULIZED TOBRAMYCIN (TOBRAMYCIN) [Concomitant]
  5. PULMOZYME [Concomitant]
  6. ALBUTEROL (ALBUTEROL SULFATE, ALBUTEROL) [Concomitant]
  7. FLOVENT [Concomitant]
  8. ULTRASE (PANCRELIPASE) [Concomitant]

REACTIONS (3)
  - CYSTIC FIBROSIS [None]
  - DIABETES MELLITUS [None]
  - DISEASE PROGRESSION [None]
